FAERS Safety Report 4519955-X (Version None)
Quarter: 2004Q4

REPORT INFORMATION
  Report Type: 
  Country: None (occurrence: None)
  Receive Date: 20041207
  Receipt Date: 20041130
  Transmission Date: 20050328
  Serious: Yes (Life-Threatening, Disabling)
  Sender: FDA-Public Use
  Company Number: US-MERCK-0412USA00088

PATIENT
  Age: 47 Year
  Sex: Female

DRUGS (5)
  1. EMEND [Suspect]
     Indication: CHEMOTHERAPY
     Route: 048
     Dates: start: 20041126, end: 20041127
  2. ANTINEOPLASTIC (UNSPECIFIED) [Concomitant]
     Route: 065
  3. DECADRON [Concomitant]
     Route: 065
  4. DOXORUBICIN [Concomitant]
     Route: 065
  5. CYTOXAN [Concomitant]
     Route: 065

REACTIONS (2)
  - CHOKING [None]
  - DYSPHAGIA [None]
